FAERS Safety Report 10429884 (Version 1)
Quarter: 2014Q3

REPORT INFORMATION
  Report Type: Spontaneous
  Country: US (occurrence: None)
  Receive Date: 20140903
  Receipt Date: 20140903
  Transmission Date: 20150326
  Serious: Yes (Hospitalization)
  Sender: FDA-Public Use
  Company Number: DL2014-0723

PATIENT
  Age: 23 Year
  Sex: Female

DRUGS (3)
  1. MISOPROSTOL TABLETS, 200 MCG [Suspect]
     Active Substance: MISOPROSTOL
     Route: 002
     Dates: start: 20140702, end: 20140710
  2. METRONIDAZOLE. [Concomitant]
     Active Substance: METRONIDAZOLE
  3. MIFEPRISTONE TABLETS, 200 MG (DANCO LABS) [Suspect]
     Active Substance: MIFEPRISTONE
     Indication: ABORTION INDUCED
     Route: 048
     Dates: start: 20140701

REACTIONS (2)
  - Haemorrhage [None]
  - Haematocrit decreased [None]

NARRATIVE: CASE EVENT DATE: 20140710
